FAERS Safety Report 5499752-1 (Version None)
Quarter: 2007Q4

REPORT INFORMATION
  Report Type: 
  Country: None (occurrence: None)
  Receive Date: 20071026
  Receipt Date: 20071019
  Transmission Date: 20080405
  Serious: Yes (Disabling)
  Sender: FDA-Public Use
  Company Number: US-BOEHRINGER INGELHEIM PHARMACEUTICALS, INC.-2007-BP-23287PF

PATIENT
  Sex: Female

DRUGS (5)
  1. SPIRIVA [Suspect]
     Route: 055
  2. ACTONEL [Concomitant]
     Route: 048
  3. GUAIFENEX DM [Concomitant]
     Route: 048
  4. ZYRTEC [Concomitant]
     Indication: HYPERSENSITIVITY
     Route: 048
  5. ZOLOFT [Concomitant]
     Route: 048

REACTIONS (1)
  - DISABILITY [None]
